FAERS Safety Report 8184352-5 (Version None)
Quarter: 2012Q1

REPORT INFORMATION
  Report Type: 
  Country: None (occurrence: None)
  Receive Date: 20120305
  Receipt Date: 20120221
  Transmission Date: 20120608
  Serious: Yes (Other)
  Sender: FDA-Public Use
  Company Number: GB-ELI_LILLY_AND_COMPANY-GB201202005960

PATIENT
  Age: 64 Year
  Sex: Male

DRUGS (9)
  1. NALOXONE HCL [Suspect]
     Indication: ANXIETY
     Dosage: 30 MG, QD
     Route: 048
     Dates: start: 20120129, end: 20120131
  2. WARFARIN SODIUM [Concomitant]
     Dosage: 5 MG, UNKNOWN
  3. DIAZEPAM [Concomitant]
     Dosage: 15 MG, QD
  4. BISOPROLOL FUMARATE [Concomitant]
     Indication: HYPERTENSION
     Dosage: 5 MG, QD
  5. WARFARIN SODIUM [Concomitant]
     Dosage: 1 MG, UNKNOWN
  6. DIAZEPAM [Concomitant]
     Dosage: 4 MG, QD
  7. AMLODIPINE [Concomitant]
     Indication: HYPERTENSION
     Dosage: 10 MG, QD
  8. PRAVASTATIN [Concomitant]
     Dosage: 20 MG, QD
  9. WARFARIN SODIUM [Concomitant]
     Dosage: 3 MG, UNKNOWN

REACTIONS (5)
  - FATIGUE [None]
  - SENSATION OF HEAVINESS [None]
  - COORDINATION ABNORMAL [None]
  - HEADACHE [None]
  - DISORIENTATION [None]
